FAERS Safety Report 11360710 (Version 1)
Quarter: 2015Q3

REPORT INFORMATION
  Report Type: Report from Study
  Country: BR (occurrence: BR)
  Receive Date: 20150810
  Receipt Date: 20150810
  Transmission Date: 20151125
  Serious: Yes (Other)
  Sender: FDA-Public Use
  Company Number: BR-ABBVIE-15K-020-1440826-00

PATIENT
  Age: 35 Year
  Sex: Female
  Weight: 60 kg

DRUGS (1)
  1. HUMIRA [Suspect]
     Active Substance: ADALIMUMAB
     Indication: RHEUMATOID ARTHRITIS
     Route: 058
     Dates: start: 20050710, end: 20150801

REACTIONS (9)
  - Arthritis infective [Unknown]
  - Osteonecrosis [Not Recovered/Not Resolved]
  - Arthralgia [Recovering/Resolving]
  - Tendon necrosis [Unknown]
  - Prosthesis implantation [Unknown]
  - Arthritis infective [Recovering/Resolving]
  - Joint swelling [Recovering/Resolving]
  - Tendon rupture [Unknown]
  - Osteoarthritis [Unknown]

NARRATIVE: CASE EVENT DATE: 20110914
